FAERS Safety Report 8019918-6 (Version None)
Quarter: 2012Q1

REPORT INFORMATION
  Report Type: 
  Country: None (occurrence: None)
  Receive Date: 20120103
  Receipt Date: 20111220
  Transmission Date: 20120608
  Serious: Yes (Congenital Anomaly)
  Sender: FDA-Public Use
  Company Number: DE-MYLANLABS-2011S1025942

PATIENT
  Age: 0 Year
  Sex: Male
  Weight: 3.43 kg

DRUGS (7)
  1. JODID [Concomitant]
     Dosage: 150 [MG/D ]/ AND LACTATION PERIOD
     Route: 064
  2. PROTHYRID [Concomitant]
     Dosage: 0.05 [MG/D ] / 0.005 [MG/D ]
     Route: 064
     Dates: start: 20100822, end: 20110610
  3. LOCABIOSOL [Concomitant]
     Dosage: 3X2 SPRAY APPLICATIONS PER DIE
     Route: 064
  4. MULTIBIONTA /00319501/ [Concomitant]
     Indication: PROPHYLAXIS OF NEURAL TUBE DEFECT
     Dosage: 0.5 [MG/D ]/ +PREC.
     Route: 064
     Dates: start: 20100822
  5. TOPIRAMATE [Suspect]
     Dosage: 250 [MG/D ]/ 100-0-150 MG/D, SINCE SEVERAL YEARS
     Route: 064
     Dates: start: 20100822, end: 20110610
  6. GRIPPEIMPFSTOFF [Concomitant]
     Route: 064
     Dates: start: 20110106, end: 20110106
  7. LEVOTHYROXINE SODIUM [Concomitant]
     Dosage: 112 [?G/D ]/ GW 0-18: 88?G/D; GW 18-26: 100?G/D; GW 26-41.5: 112 ?G/D
     Route: 064
     Dates: start: 20100822, end: 20110610

REACTIONS (2)
  - HYPOSPADIAS [None]
  - MATERNAL EXPOSURE DURING PREGNANCY [None]
